FAERS Safety Report 9780616 (Version 2)
Quarter: 2014Q1

REPORT INFORMATION
  Report Type: Spontaneous
  Country: US (occurrence: US)
  Receive Date: 20131224
  Receipt Date: 20140126
  Transmission Date: 20141002
  Serious: Yes (Other)
  Sender: FDA-Public Use
  Company Number: US-009507513-1312USA010872

PATIENT
  Sex: Female

DRUGS (2)
  1. DULERA [Suspect]
     Indication: RESPIRATORY DISORDER
     Dosage: 2 PUFFS TWICE A DAY
     Route: 055
     Dates: start: 201212
  2. DIOVAN [Concomitant]
     Dosage: UNK

REACTIONS (3)
  - Deafness [Unknown]
  - Underdose [Unknown]
  - Product quality issue [Unknown]
